FAERS Safety Report 21819166 (Version 1)
Quarter: 2023Q1

REPORT INFORMATION
  Report Type: Spontaneous
  Country: US (occurrence: US)
  Receive Date: 20230104
  Receipt Date: 20230104
  Transmission Date: 20230418
  Serious: Yes (Other)
  Sender: FDA-Public Use
  Company Number: US-BAYER-2022P034607

PATIENT
  Age: 61 Year
  Sex: Male

DRUGS (2)
  1. SORAFENIB [Suspect]
     Active Substance: SORAFENIB
  2. PEGVISOMANT [Concomitant]
     Active Substance: PEGVISOMANT
     Dosage: 10 MG/DAY

REACTIONS (5)
  - Hepatocellular carcinoma [None]
  - Portal vein thrombosis [None]
  - Alpha 1 foetoprotein increased [None]
  - Blood growth hormone increased [None]
  - Drug resistance [None]
